FAERS Safety Report 7335861-X (Version None)
Quarter: 2011Q1

REPORT INFORMATION
  Report Type: 
  Country: None (occurrence: None)
  Receive Date: 20110307
  Receipt Date: 20110223
  Transmission Date: 20110831
  Serious: Yes (Other)
  Sender: FDA-Public Use
  Company Number: US-JNJFOC-2010024575

PATIENT
  Sex: Female

DRUGS (5)
  1. ZYRTEC [Suspect]
     Dosage: FOR TWO WEEKS
     Route: 048
  2. ZYRTEC [Suspect]
     Dosage: FOR ONE WEEK
     Route: 048
  3. ZYRTEC [Suspect]
     Dosage: DAILY DOSE TEXT: UNKNOWN
     Route: 048
  4. ZYRTEC [Suspect]
     Dosage: FOR 2 WEEKS.
     Route: 048
  5. ZYRTEC [Suspect]
     Indication: MULTIPLE ALLERGIES
     Dosage: FOR TWO WEEKS
     Route: 048

REACTIONS (5)
  - DEPENDENCE [None]
  - PRURITUS [None]
  - HEADACHE [None]
  - WITHDRAWAL SYNDROME [None]
  - URTICARIA [None]
